FAERS Safety Report 5092845-2 (Version None)
Quarter: 2006Q3

REPORT INFORMATION
  Report Type: 
  Country: None (occurrence: None)
  Receive Date: 20060828
  Receipt Date: 20060818
  Transmission Date: 20061208
  Serious: Yes (Life-Threatening, Hospitalization)
  Sender: FDA-Public Use
  Company Number: CHWYE731618AUG06

PATIENT
  Age: 60 Year
  Sex: Female

DRUGS (15)
  1. TAZOBAC (PIPERACILLIN/TAZOBACTAM, INJECTION) [Suspect]
     Dosage: 4.5 G 3X PER 1 DAY INTRAVENOUS
     Route: 042
     Dates: start: 20060511, end: 20060528
  2. NEURONTIN [Suspect]
     Indication: PHANTOM PAIN
     Dosage: SEE IMAGE
     Route: 048
     Dates: start: 20060428, end: 20060429
  3. NEURONTIN [Suspect]
     Indication: PHANTOM PAIN
     Dosage: SEE IMAGE
     Route: 048
     Dates: start: 20060430, end: 20060605
  4. VANCOMYCIN [Suspect]
     Dosage: SEE IMAGE
     Dates: start: 20060511, end: 20060530
  5. VANCOMYCIN [Suspect]
     Dosage: SEE IMAGE
     Dates: start: 20060530, end: 20060603
  6. VANCOMYCIN [Suspect]
     Dosage: SEE IMAGE
     Dates: start: 20060606, end: 20060606
  7. CIPROFLOXACIN [Concomitant]
  8. CIPROFLOXACIN [Concomitant]
  9. DALACIN C PHOSPHATE (CLINDAMYCIN PHOSPHATE) [Concomitant]
  10. DALACIN C PHOSPHATE (CLINDAMYCIN PHOSPHATE) [Concomitant]
  11. GLUCOVANCE [Concomitant]
  12. ZESTRIL [Concomitant]
  13. SELIPRAN (PRAVASTATIN SODIUM) [Concomitant]
  14. PLAVIX [Concomitant]
  15. PRAXILENE (NAFTIDROFURYL OXALATE) [Concomitant]

REACTIONS (3)
  - CHOLESTASIS [None]
  - DRUG RASH WITH EOSINOPHILIA AND SYSTEMIC SYMPTOMS [None]
  - RENAL FAILURE ACUTE [None]
